FAERS Safety Report 9455679 (Version 3)
Quarter: 2014Q1

REPORT INFORMATION
  Report Type: Spontaneous
  Country: IT (occurrence: IT)
  Receive Date: 20130813
  Receipt Date: 20140205
  Transmission Date: 20141002
  Serious: Yes (Hospitalization)
  Sender: FDA-Public Use
  Company Number: IT-PFIZER INC-2013235041

PATIENT
  Age: 24 Year
  Sex: Female

DRUGS (1)
  1. ZOLOFT [Suspect]
     Dosage: 12 DF, TOTAL DOSE
     Route: 048

REACTIONS (4)
  - Intentional overdose [Unknown]
  - Intentional drug misuse [Unknown]
  - Poisoning [Unknown]
  - Abdominal pain upper [Unknown]
